FAERS Safety Report 16652912 (Version 3)
Quarter: 2020Q2

REPORT INFORMATION
  Report Type: Spontaneous
  Country: IL (occurrence: IL)
  Receive Date: 20190731
  Receipt Date: 20200612
  Transmission Date: 20200713
  Serious: Yes (Other)
  Sender: FDA-Public Use
  Company Number: IL-AMGEN-ISRSP2019119465

PATIENT
  Age: 57 Year
  Sex: Male

DRUGS (28)
  1. PROLOL [PROPRANOLOL HYDROCHLORIDE] [Concomitant]
     Dosage: 10 MILLIGRAM
  2. AMLODIPINE [Concomitant]
     Active Substance: AMLODIPINE BESYLATE
  3. LENVIMA [Concomitant]
     Active Substance: LENVATINIB
  4. GLUCOMINE [METFORMIN HYDROCHLORIDE] [Concomitant]
  5. IMOVANE [Concomitant]
     Active Substance: ZOPICLONE
  6. OPTALGIN [Concomitant]
     Active Substance: METAMIZOLE
  7. VITAMINS NOS [Concomitant]
     Active Substance: VITAMINS
  8. XGEVA [Suspect]
     Active Substance: DENOSUMAB
     Indication: PRODUCT USED FOR UNKNOWN INDICATION
     Dosage: 120 MILLIGRAM (1.7ML), QMO
     Route: 065
     Dates: end: 2020
  9. NOCTURNO [Concomitant]
     Dosage: 7.5 UNK
  10. MULTIVITAMIN [ASCORBIC ACID;BIOTIN;CALCIUM PANTOTHENATE;CYANOCOBALAMIN [Concomitant]
     Active Substance: VITAMINS
  11. ENSURE [NUTRIENTS NOS] [Concomitant]
  12. OTRIVIN [Concomitant]
     Active Substance: XYLOMETAZOLINE
  13. CREON [Concomitant]
     Active Substance: PANCRELIPASE AMYLASE\PANCRELIPASE LIPASE\PANCRELIPASE PROTEASE
     Dosage: 25000 UNK
  14. TRIBEMIN [Concomitant]
     Active Substance: CYANOCOBALAMIN\PYRIDOXINE HYDROCHLORIDE\THIAMINE
     Dosage: UNK
  15. AFINITOR [Concomitant]
     Active Substance: EVEROLIMUS
  16. ACERIL [RAMIPRIL] [Concomitant]
  17. XATRAL [Concomitant]
     Active Substance: ALFUZOSIN
  18. SOMATULIN [Concomitant]
     Active Substance: LANREOTIDE ACETATE
  19. RECLAST [Suspect]
     Active Substance: ZOLEDRONIC ACID
     Indication: PRODUCT USED FOR UNKNOWN INDICATION
     Dosage: UNK
     Route: 065
  20. ROKACET PLUS [Concomitant]
  21. GLUCOMIN [Concomitant]
     Active Substance: METFORMIN HYDROCHLORIDE
     Dosage: 850 MILLIGRAM
  22. BUTRANS [Concomitant]
     Active Substance: BUPRENORPHINE
  23. XERMELO [Concomitant]
     Active Substance: TELOTRISTAT ETHYL
  24. SOMATULINE [LANREOTIDE] [Concomitant]
     Active Substance: LANREOTIDE
     Indication: NEUROENDOCRINE TUMOUR
     Dosage: 240 MILLIGRAM, Q4WK
     Dates: start: 20110816
  25. EUTHYROX [Concomitant]
     Active Substance: LEVOTHYROXINE SODIUM
  26. PROLOL [METOPROLOL SUCCINATE] [Concomitant]
  27. XATRAL [ALFUZOSIN HYDROCHLORIDE] [Concomitant]
     Active Substance: ALFUZOSIN
     Dosage: 10 MILLIGRAM
  28. INTERFERON [Concomitant]
     Active Substance: INTERFERON

REACTIONS (7)
  - Infection [Not Recovered/Not Resolved]
  - Tooth extraction [Unknown]
  - Urethral stent insertion [Unknown]
  - Osteonecrosis of jaw [Not Recovered/Not Resolved]
  - Groin pain [Not Recovered/Not Resolved]
  - Neuroendocrine carcinoma metastatic [Unknown]
  - Musculoskeletal pain [Not Recovered/Not Resolved]

NARRATIVE: CASE EVENT DATE: 2020
